FAERS Safety Report 6250319-7 (Version None)
Quarter: 2009Q2

REPORT INFORMATION
  Report Type: 
  Country: None (occurrence: None)
  Receive Date: 20090626
  Receipt Date: 20090626
  Transmission Date: 20091009
  Serious: Yes (Other)
  Sender: FDA-Public Use
  Company Number: None

PATIENT
  Age: 38 Year
  Sex: Male
  Weight: 72.5755 kg

DRUGS (1)
  1. ALBUTEROL SULATE [Suspect]
     Indication: ASTHMA
     Dosage: 90MCG 2X 4-6 HRS INHAL
     Route: 055
     Dates: start: 20090101, end: 20090624

REACTIONS (6)
  - CHEST PAIN [None]
  - DRUG EFFECT DELAYED [None]
  - FEELING ABNORMAL [None]
  - HEART RATE INCREASED [None]
  - INCORRECT DRUG DOSAGE FORM ADMINISTERED [None]
  - PRODUCT SUBSTITUTION ISSUE [None]
